FAERS Safety Report 23392431 (Version 1)
Quarter: 2024Q1

REPORT INFORMATION
  Report Type: Spontaneous
  Country: US (occurrence: US)
  Receive Date: 20240111
  Receipt Date: 20240111
  Transmission Date: 20240410
  Serious: No
  Sender: FDA-Public Use
  Company Number: US-SA-SAC20240108000317

PATIENT
  Age: 1 Year
  Sex: Male

DRUGS (4)
  1. ALPROLIX [Suspect]
     Active Substance: EFTRENONACOG ALFA
     Dosage: 650 UNITS/1300 UNITS, QW
     Route: 065
  2. ALPROLIX [Suspect]
     Active Substance: EFTRENONACOG ALFA
     Dosage: 650 UNITS/1300 UNITS, QW
     Route: 065
  3. ALPROLIX [Suspect]
     Active Substance: EFTRENONACOG ALFA
     Dosage: 650 UNITS/1300 UNITS, PRN
     Route: 065
  4. ALPROLIX [Suspect]
     Active Substance: EFTRENONACOG ALFA
     Dosage: 650 UNITS/1300 UNITS, PRN
     Route: 065

REACTIONS (3)
  - Fall [Unknown]
  - Face injury [Unknown]
  - Eye swelling [Unknown]

NARRATIVE: CASE EVENT DATE: 20240103
